FAERS Safety Report 8576484-4 (Version None)
Quarter: 2012Q3

REPORT INFORMATION
  Report Type: 
  Country: None (occurrence: None)
  Receive Date: 20120807
  Receipt Date: 20120713
  Transmission Date: 20120928
  Serious: Yes (Hospitalization)
  Sender: FDA-Public Use
  Company Number: US-ROCHE-1088614

PATIENT
  Sex: Female
  Weight: 72.9 kg

DRUGS (6)
  1. TRAMADOL HCL [Concomitant]
     Dates: start: 20120622
  2. ATIVAN [Concomitant]
     Dates: start: 20110617
  3. COMPAZINE [Concomitant]
     Dates: start: 20120413
  4. XELODA [Suspect]
     Indication: BREAST CANCER
     Route: 048
     Dates: start: 20120615
  5. RAMUCIRUMAB [Suspect]
     Indication: BREAST CANCER
     Route: 042
     Dates: start: 20120615
  6. LISINOPRIL [Concomitant]
     Dates: start: 20120210

REACTIONS (8)
  - MUCOSAL INFLAMMATION [None]
  - MALAISE [None]
  - ASCITES [None]
  - PALMAR-PLANTAR ERYTHRODYSAESTHESIA SYNDROME [None]
  - DEHYDRATION [None]
  - DYSPNOEA [None]
  - BLOOD BILIRUBIN INCREASED [None]
  - CONSTIPATION [None]
